FAERS Safety Report 7295843-3 (Version None)
Quarter: 2011Q1

REPORT INFORMATION
  Report Type: 
  Country: None (occurrence: None)
  Receive Date: 20110216
  Receipt Date: 20110126
  Transmission Date: 20110831
  Serious: No
  Sender: FDA-Public Use
  Company Number: US-ABBOTT-11P-163-0700595-00

PATIENT
  Sex: Male
  Weight: 90.8 kg

DRUGS (3)
  1. ASPIRIN [Concomitant]
     Indication: PRODUCT USED FOR UNKNOWN INDICATION
     Dosage: DAILY PRIOR TO DOSE OF SIMCOR
     Route: 048
  2. SIMCOR [Suspect]
     Indication: DYSLIPIDAEMIA
     Dosage: NIGHTLY
     Route: 048
     Dates: start: 20110119
  3. RANATIDINE [Concomitant]
     Indication: GASTROOESOPHAGEAL REFLUX DISEASE

REACTIONS (3)
  - DYSPEPSIA [None]
  - GASTRIC PH DECREASED [None]
  - ABDOMINAL DISCOMFORT [None]
